FAERS Safety Report 26126996 (Version 1)
Quarter: 2025Q4

REPORT INFORMATION
  Report Type: Spontaneous
  Country: JP (occurrence: JP)
  Receive Date: 20251205
  Receipt Date: 20251205
  Transmission Date: 20260118
  Serious: Yes (Other)
  Sender: AMGEN
  Company Number: JP-AMGEN-JPNSP2025238104

PATIENT
  Age: 8 Decade
  Sex: Male
  Weight: 64 kg

DRUGS (22)
  1. BEVACIZUMAB [Suspect]
     Active Substance: BEVACIZUMAB
     Indication: Colon cancer stage IV
     Dosage: UNK (9 COURSES)
     Route: 065
  2. BEVACIZUMAB [Suspect]
     Active Substance: BEVACIZUMAB
     Indication: Metastases to liver
     Dosage: 320 MILLIGRAM (DAY 1)
     Route: 065
  3. BEVACIZUMAB [Suspect]
     Active Substance: BEVACIZUMAB
     Indication: Metastases to lymph nodes
  4. SILODOSIN [Concomitant]
     Active Substance: SILODOSIN
     Dosage: 8 MILLIGRAM, QD
  5. OXALIPLATIN [Concomitant]
     Active Substance: OXALIPLATIN
     Indication: Colon cancer stage IV
     Dosage: UNK (9 COURSES)
  6. OXALIPLATIN [Concomitant]
     Active Substance: OXALIPLATIN
     Indication: Metastases to liver
     Dosage: 230 MILLIGRAM (DAY 1)
  7. OXALIPLATIN [Concomitant]
     Active Substance: OXALIPLATIN
     Indication: Metastases to lymph nodes
  8. FLUOROURACIL [Concomitant]
     Active Substance: FLUOROURACIL
     Indication: Colon cancer stage IV
     Dosage: UNK (9 COURSES)
  9. FLUOROURACIL [Concomitant]
     Active Substance: FLUOROURACIL
     Indication: Metastases to liver
  10. LEUCOVORIN [Concomitant]
     Active Substance: LEUCOVORIN\LEUCOVORIN CALCIUM
     Indication: Colon cancer stage IV
     Dosage: UNK (9 COURSES)
  11. LEUCOVORIN [Concomitant]
     Active Substance: LEUCOVORIN\LEUCOVORIN CALCIUM
     Indication: Metastases to liver
  12. TEGAFUR [Concomitant]
     Active Substance: TEGAFUR
     Indication: Colon cancer stage IV
     Dosage: FOR 1 YEAR
     Route: 048
  13. TEGAFUR [Concomitant]
     Active Substance: TEGAFUR
     Indication: Metastases to liver
  14. TEGAFUR [Concomitant]
     Active Substance: TEGAFUR
     Indication: Metastases to lymph nodes
  15. URACIL [Concomitant]
     Active Substance: URACIL
     Indication: Colon cancer stage IV
     Dosage: FOR 1 YEAR
     Route: 048
  16. URACIL [Concomitant]
     Active Substance: URACIL
     Indication: Metastases to liver
  17. CAPECITABINE [Concomitant]
     Active Substance: CAPECITABINE
     Indication: Metastases to lymph nodes
     Dosage: 3000 MILLIGRAM, QD (1-14 DAY)
  18. GRANISETRON [Concomitant]
     Active Substance: GRANISETRON
     Indication: Metastases to lymph nodes
     Dosage: 3 MILLIGRAM (DAY 1)
  19. DEXAMETHASONE [Concomitant]
     Active Substance: DEXAMETHASONE
     Indication: Metastases to lymph nodes
     Dosage: 6 MILLIGRAM (DAY 1)
  20. IRINOTECAN [Concomitant]
     Active Substance: IRINOTECAN
     Indication: Colon cancer stage IV
  21. IRINOTECAN [Concomitant]
     Active Substance: IRINOTECAN
     Indication: Metastases to liver
  22. IRINOTECAN [Concomitant]
     Active Substance: IRINOTECAN
     Indication: Metastases to lymph nodes

REACTIONS (1)
  - Colon cancer metastatic [Unknown]
